FAERS Safety Report 16460031 (Version 1)
Quarter: 2019Q2

REPORT INFORMATION
  Report Type: Spontaneous
  Country: ES (occurrence: ES)
  Receive Date: 20190620
  Receipt Date: 20190620
  Transmission Date: 20190711
  Serious: Yes (Hospitalization, Other)
  Sender: FDA-Public Use
  Company Number: ES-PFIZER INC-2019229343

PATIENT
  Sex: Female

DRUGS (16)
  1. CARBOPLATIN. [Suspect]
     Active Substance: CARBOPLATIN
     Dosage: UNK
     Dates: start: 20190119
  2. ZOMARIST [METFORMIN HYDROCHLORIDE;VILDAGLIPTIN] [Concomitant]
     Dosage: UNK
  3. CALCIUM [Concomitant]
     Active Substance: CALCIUM
     Dosage: UNK (1-0-1)
  4. ALDACTONE [Concomitant]
     Active Substance: SPIRONOLACTONE
     Dosage: UNK (2-0-0)
  5. PANTOPRAZOLE [Concomitant]
     Active Substance: PANTOPRAZOLE
     Dosage: 1 DF, DAILY (EVERY 24 HOURS)
  6. FERPLEX FOL [Concomitant]
     Dosage: 1 DF, DAILY
  7. MAGNOGENE [MAGNESIUM CHLORIDE] [Concomitant]
     Dosage: 1 DF, 2X/DAY (EVERY 12 HOURS)
  8. CARBOPLATIN. [Suspect]
     Active Substance: CARBOPLATIN
     Indication: OVARIAN CANCER
     Dosage: UNK
     Route: 042
     Dates: start: 20170817, end: 20180312
  9. CARBOPLATIN. [Suspect]
     Active Substance: CARBOPLATIN
     Dosage: 521 MG, CUMULATIVE DOSE
     Dates: start: 20180131
  10. TAXOL [Suspect]
     Active Substance: PACLITAXEL
     Dosage: UNK, WEEKLY (CONSECUTIVE WEEKS AND ONE OF REST)
     Route: 042
     Dates: start: 20170817, end: 20180312
  11. MAGNOGENE [MAGNESIUM CHLORIDE] [Concomitant]
     Dosage: UNK (1-0-1)
  12. CARBOPLATIN. [Suspect]
     Active Substance: CARBOPLATIN
     Dosage: 350 MG, UNK
     Dates: start: 20180221
  13. HIBOR [Concomitant]
     Dosage: 5000 MU, DAILY
     Route: 058
  14. SEGURIL [Concomitant]
     Active Substance: FUROSEMIDE
     Dosage: UNK (1-1-0)
  15. SEGURIL [Concomitant]
     Active Substance: FUROSEMIDE
     Dosage: UNK (40 MG AT BREAKFAST)
  16. FORTASEC [LOPERAMIDE] [Concomitant]
     Dosage: UNK, 3X/DAY (EVERY 8 HOURS)

REACTIONS (8)
  - Drug hypersensitivity [Recovering/Resolving]
  - Embolism [Unknown]
  - Neoplasm progression [Unknown]
  - Wound infection [Unknown]
  - Pruritus [Recovering/Resolving]
  - Asthma [Unknown]
  - Enterocutaneous fistula [Unknown]
  - Dyspnoea [Unknown]

NARRATIVE: CASE EVENT DATE: 201710
